FAERS Safety Report 9705209 (Version 3)
Quarter: 2014Q2

REPORT INFORMATION
  Report Type: Report from Study
  Country: JP (occurrence: JP)
  Receive Date: 20131122
  Receipt Date: 20140417
  Transmission Date: 20141212
  Serious: Yes (Hospitalization)
  Sender: FDA-Public Use
  Company Number: JP-TAKEDA-TCI2013A04384

PATIENT
  Age: 63 Year
  Sex: Female
  Weight: 63.8 kg

DRUGS (13)
  1. ALOGLIPTIN [Suspect]
     Indication: TYPE 2 DIABETES MELLITUS
     Dosage: 25 MG, QD
     Route: 048
     Dates: start: 20130124, end: 20130713
  2. ALOGLIPTIN [Suspect]
     Dosage: 25 MG, QD
     Route: 048
     Dates: start: 20130720, end: 20130731
  3. PIOGLITAZONE [Suspect]
     Indication: TYPE 2 DIABETES MELLITUS
     Dosage: UNK, QD
     Route: 048
     Dates: start: 20130418, end: 20130713
  4. PIOGLITAZONE [Suspect]
     Dosage: UNK, QD
     Route: 048
     Dates: start: 20130720, end: 20130731
  5. AVAPRO [Concomitant]
     Indication: HYPERTENSION
     Dosage: 100 MG, 1 DAY
     Route: 048
     Dates: start: 20110916, end: 20130713
  6. AVAPRO [Concomitant]
     Dosage: 100 MG, 1 DAY
     Route: 048
     Dates: start: 20130720
  7. IMIDAPRIL HYDROCHLORIDE [Concomitant]
     Indication: HYPERTENSION
     Dosage: 5 MG, 1 DAY
     Route: 048
     Dates: start: 20111014, end: 20130713
  8. IMIDAPRIL HYDROCHLORIDE [Concomitant]
     Dosage: 1 DAY 5 MG, 1 DAY
     Route: 048
     Dates: start: 20130720
  9. AMLODIPINE                         /00972402/ [Concomitant]
     Indication: HYPERTENSION
     Dosage: 5 MG, 1 DAY
     Route: 048
     Dates: start: 20111209, end: 20130713
  10. AMLODIPINE                         /00972402/ [Concomitant]
     Dosage: 5 MG, 1DAY
     Route: 048
     Dates: start: 20130720
  11. DUOTRAV [Concomitant]
     Indication: GLAUCOMA
     Dosage: UNK, QD
     Route: 047
  12. BRIMONIDINE TARTRATE [Concomitant]
     Indication: GLAUCOMA
     Dosage: UNK UNK, BID
     Route: 047
  13. AZOPT [Concomitant]
     Indication: GLAUCOMA
     Dosage: UNK, TID
     Route: 047

REACTIONS (1)
  - Pyelonephritis [Recovered/Resolved]
